FAERS Safety Report 5253709-4 (Version None)
Quarter: 2007Q1

REPORT INFORMATION
  Report Type: 
  Country: None (occurrence: None)
  Receive Date: 20070226
  Receipt Date: 20070219
  Transmission Date: 20070707
  Serious: Yes (Hospitalization, Other)
  Sender: FDA-Public Use
  Company Number: 2007SP000613

PATIENT
  Age: 57 Year
  Sex: Female
  Weight: 60.782 kg

DRUGS (5)
  1. TEMODAR [Suspect]
     Indication: OLIGODENDROGLIOMA
     Dosage: 340 MG; PO; 225 MG; PO
     Route: 048
     Dates: start: 20061214, end: 20061218
  2. TEMODAR [Suspect]
     Indication: OLIGODENDROGLIOMA
     Dosage: 340 MG; PO; 225 MG; PO
     Route: 048
     Dates: start: 20070118, end: 20070122
  3. ANZEMET (CON.) [Concomitant]
  4. ATIVAN (CON.) [Concomitant]
  5. KEPPRA (CON.) [Concomitant]

REACTIONS (5)
  - FEBRILE NEUTROPENIA [None]
  - PANCYTOPENIA [None]
  - PHARYNGOLARYNGEAL PAIN [None]
  - RASH [None]
  - REFUSAL OF TREATMENT BY PATIENT [None]
